FAERS Safety Report 7128592-2 (Version None)
Quarter: 2010Q4

REPORT INFORMATION
  Report Type: 
  Country: None (occurrence: None)
  Receive Date: 20101130
  Receipt Date: 20101119
  Transmission Date: 20110411
  Serious: Yes (Hospitalization)
  Sender: FDA-Public Use
  Company Number: US-ASTRAZENECA-2010SE55418

PATIENT
  Age: 76 Year
  Sex: Female
  Weight: 70.3 kg

DRUGS (2)
  1. TOPROL-XL [Suspect]
     Indication: HYPERTENSION
     Route: 048
     Dates: start: 20080101
  2. DIOVAN [Concomitant]

REACTIONS (4)
  - BLOOD CHOLESTEROL INCREASED [None]
  - LARGE INTESTINE PERFORATION [None]
  - MYALGIA [None]
  - PAIN IN EXTREMITY [None]
